FAERS Safety Report 6511543-9 (Version None)
Quarter: 2009Q4

REPORT INFORMATION
  Report Type: 
  Country: None (occurrence: None)
  Receive Date: 20091222
  Receipt Date: 20090417
  Transmission Date: 20100525
  Serious: No
  Sender: FDA-Public Use
  Company Number: US-ASTRAZENECA-2009UW09780

PATIENT
  Age: 74 Year
  Sex: Female
  Weight: 63.5 kg

DRUGS (5)
  1. CRESTOR [Suspect]
     Indication: BLOOD CHOLESTEROL INCREASED
     Route: 048
     Dates: start: 20090401
  2. NEXIUM [Concomitant]
  3. LASIX [Concomitant]
  4. POTASSIUM [Concomitant]
  5. FISH OIL [Concomitant]

REACTIONS (3)
  - FOOT DEFORMITY [None]
  - MUSCLE SPASMS [None]
  - WEIGHT INCREASED [None]
